FAERS Safety Report 17577833 (Version 1)
Quarter: 2020Q1

REPORT INFORMATION
  Report Type: Spontaneous
  Country: ES (occurrence: ES)
  Receive Date: 20200324
  Receipt Date: 20200324
  Transmission Date: 20200409
  Serious: Yes (Life-Threatening, Other)
  Sender: FDA-Public Use
  Company Number: ES-MYLANLABS-2020M1029854

PATIENT
  Age: 86 Year
  Sex: Female
  Weight: 46 kg

DRUGS (6)
  1. ACETYLSALICYLIC ACID [Concomitant]
     Active Substance: ASPIRIN
     Dosage: V?A ORAL
     Route: 048
     Dates: start: 2019
  2. OMEPRAZOL                          /00661201/ [Concomitant]
     Active Substance: OMEPRAZOLE
     Dosage: 20 MILLIGRAM, QD
     Route: 048
     Dates: start: 2019
  3. RIVAROXABAN [Concomitant]
     Active Substance: RIVAROXABAN
     Route: 048
     Dates: start: 2019
  4. ENALAPRIL HIDROCLOROTIAZIDA [Concomitant]
     Dosage: ENALAPRIL 20 MG HIDROCLOROTIAZIDA 12.5 MG
     Route: 048
     Dates: start: 2019
  5. ATORVASTATIN [Suspect]
     Active Substance: ATORVASTATIN
     Indication: PROPHYLAXIS
     Dosage: 8M MG AL D?A V?A ORAL
     Route: 048
     Dates: start: 202002
  6. URSODEOXYCHOLIC ACID [Concomitant]
     Active Substance: URSODIOL
     Dosage: 300 MILLIGRAM
     Route: 048
     Dates: start: 2019

REACTIONS (6)
  - Colitis [Recovering/Resolving]
  - Hepatitis [Recovering/Resolving]
  - Renal failure [Recovering/Resolving]
  - Sepsis [Recovering/Resolving]
  - Abdominal pain [Recovering/Resolving]
  - Diarrhoea [Recovering/Resolving]

NARRATIVE: CASE EVENT DATE: 202002
